FAERS Safety Report 6869999-8 (Version None)
Quarter: 2010Q3

REPORT INFORMATION
  Report Type: 
  Country: None (occurrence: None)
  Receive Date: 20100722
  Receipt Date: 20100719
  Transmission Date: 20110219
  Serious: Yes (Other)
  Sender: FDA-Public Use
  Company Number: CH-PFIZER INC-2010077615

PATIENT
  Age: 60 Year
  Sex: Female

DRUGS (12)
  1. CELEBREX [Suspect]
     Dosage: 200 MG, 2X/DAY
     Route: 048
     Dates: start: 20090930, end: 20100607
  2. ASPIRIN [Concomitant]
     Dosage: 100 MG, UNK
     Route: 048
  3. BACTROBAN NASAL [Concomitant]
     Dosage: UNK
     Route: 045
  4. ENALAPRIL MALEATE AND HYDROCHLOROTHIAZIDE [Concomitant]
     Dosage: 1 DF, 1X/DAY
     Route: 048
  5. CRESTOR [Concomitant]
     Dosage: 20 MG, UNK
     Route: 048
  6. ELTROXIN [Concomitant]
     Dosage: 0.1 MG, WEEKLY
     Route: 048
  7. THYBON [Concomitant]
     Dosage: 20 UG, UNK
  8. MADOPAR DR [Concomitant]
     Dosage: 200 MG/50 MG, 1X/DAY
     Route: 048
  9. MAGNESIOCARD [Concomitant]
     Dosage: 1 DF, 1X/DAY
  10. METOPROLOL SUCCINATE [Concomitant]
     Dosage: 25 MG, UNK
     Route: 048
  11. OMEPRAZOLE [Concomitant]
     Dosage: 20 MG, UNK
     Route: 048
  12. SUPRADYN [Concomitant]
     Dosage: 1 DF, 1X/DAY
     Route: 048

REACTIONS (1)
  - COLITIS [None]
